FAERS Safety Report 8090634-8 (Version None)
Quarter: 2012Q1

REPORT INFORMATION
  Report Type: 
  Country: None (occurrence: None)
  Receive Date: 20120129
  Receipt Date: 20111114
  Transmission Date: 20120608
  Serious: No
  Sender: FDA-Public Use
  Company Number: US-ABBOTT-11P-163-0874005-00

PATIENT
  Age: 41 Year
  Sex: Female

DRUGS (5)
  1. FIORICET [Concomitant]
     Indication: PAIN
     Route: 048
  2. HUMIRA [Suspect]
     Indication: RHEUMATOID ARTHRITIS
     Dates: start: 20111012
  3. METHOTREXATE [Concomitant]
     Indication: RHEUMATOID ARTHRITIS
     Dosage: 2.5 MG /TAB; 5TABS ONCE A WEEK = 12.5 MG
     Route: 048
  4. FOLIC ACID [Concomitant]
     Indication: VITAMIN SUPPLEMENTATION
     Route: 048
  5. XANAX [Concomitant]
     Indication: ANXIETY
     Route: 048

REACTIONS (4)
  - PARAESTHESIA [None]
  - HEADACHE [None]
  - FATIGUE [None]
  - ARTHRALGIA [None]
